FAERS Safety Report 13053233 (Version 1)
Quarter: 2016Q4

REPORT INFORMATION
  Report Type: Spontaneous
  Country: GB (occurrence: GB)
  Receive Date: 20161222
  Receipt Date: 20161222
  Transmission Date: 20170207
  Serious: Yes (Hospitalization)
  Sender: FDA-Public Use
  Company Number: GB-ACCORD-046631

PATIENT
  Age: 80 Year
  Sex: Male

DRUGS (2)
  1. DIAZEPAM TEVA UK [Concomitant]
     Dosage: ONLY HAD TOTAL OF 20 MG
  2. SERTRALINE ACCORD [Suspect]
     Active Substance: SERTRALINE HYDROCHLORIDE
     Indication: ACUTE STRESS DISORDER
     Dosage: PRESCRIBED 50 MG DAILY
     Route: 048
     Dates: start: 20161123, end: 20161129

REACTIONS (2)
  - Melaena [Recovering/Resolving]
  - Haematemesis [Recovering/Resolving]

NARRATIVE: CASE EVENT DATE: 20161124
